FAERS Safety Report 18213290 (Version 1)
Quarter: 2020Q3

REPORT INFORMATION
  Report Type: Spontaneous
  Country: GB (occurrence: GB)
  Receive Date: 20200831
  Receipt Date: 20200831
  Transmission Date: 20201103
  Serious: Yes (Other)
  Sender: FDA-Public Use
  Company Number: GB-GLAXOSMITHKLINE-GB2020173419

PATIENT
  Age: 47 Year
  Sex: Male

DRUGS (1)
  1. CEFUROXIM SODIUM [Suspect]
     Active Substance: CEFUROXIME SODIUM
     Indication: LAPAROTOMY
     Dosage: NA
     Route: 042

REACTIONS (2)
  - Drug-induced liver injury [Recovered/Resolved]
  - Jaundice [Recovered/Resolved]

NARRATIVE: CASE EVENT DATE: 20200610
